FAERS Safety Report 4390255-4 (Version None)
Quarter: 2004Q3

REPORT INFORMATION
  Report Type: 
  Country: None (occurrence: None)
  Receive Date: 20040706
  Receipt Date: 20040510
  Transmission Date: 20050211
  Serious: Yes (Hospitalization)
  Sender: FDA-Public Use
  Company Number: BR-ROCHE-367413

PATIENT
  Age: 49 Year
  Sex: Female
  Weight: 43 kg

DRUGS (4)
  1. XELODA [Suspect]
     Route: 048
     Dates: start: 20040411, end: 20040528
  2. TRAMAL [Concomitant]
     Indication: PAIN
     Route: 048
  3. CHEMOTHERAPY DRUG NOS [Concomitant]
     Dates: start: 20040621, end: 20040623
  4. CELECOXIB [Concomitant]
     Indication: PAIN
     Route: 048
     Dates: start: 20040615

REACTIONS (1)
  - TUMOUR MARKER INCREASED [None]
